FAERS Safety Report 12883945 (Version 7)
Quarter: 2017Q4

REPORT INFORMATION
  Report Type: Spontaneous
  Country: US (occurrence: US)
  Receive Date: 20161026
  Receipt Date: 20171106
  Transmission Date: 20180320
  Serious: No
  Sender: FDA-Public Use
  Company Number: US-PFIZER INC-2014018528

PATIENT
  Age: 59 Year
  Sex: Female
  Weight: 48.73 kg

DRUGS (22)
  1. LYRICA [Suspect]
     Active Substance: PREGABALIN
     Indication: PAIN
     Dosage: 125 MG, 2X/DAY (LYRICA 50 MG CAPS, ONE BY MOUTH TWICE A DAY ALONG WITH 75 MG CAPSULE)
     Route: 048
  2. TRAMADOL HCL [Concomitant]
     Active Substance: TRAMADOL HYDROCHLORIDE
     Dosage: 50 MG, 3X/DAY (1 PILL BY MOUTH THREE TIMES A DAY)
     Route: 048
     Dates: start: 20140902
  3. LYRICA [Suspect]
     Active Substance: PREGABALIN
     Indication: TOBACCO ABUSE
     Dosage: 125 MG, UNK
  4. LYRICA [Suspect]
     Active Substance: PREGABALIN
     Indication: DEPRESSION
     Dosage: 50 MG CAPS AT ONE BY MOUTH TWICE A DAY ALONG WITH 75 MG CAPSULE
     Route: 048
  5. LINZESS [Concomitant]
     Active Substance: LINACLOTIDE
     Dosage: 145 UG, 1X/DAY
     Dates: start: 20140527
  6. CLONAZEPAM. [Concomitant]
     Active Substance: CLONAZEPAM
     Dosage: 2 MG, 1X/DAY (1 BID)
     Route: 048
  7. LYRICA [Suspect]
     Active Substance: PREGABALIN
     Indication: MAJOR DEPRESSION
     Dosage: 125 MG, 2X/DAY
     Dates: start: 201609
  8. INDOMETHACIN. [Concomitant]
     Active Substance: INDOMETHACIN
     Dosage: UNK
  9. SENNA S [Concomitant]
     Active Substance: DOCUSATE SODIUM\SENNA LEAF
     Dosage: 100 MG, 1X/DAY [SENNOSIDES 8.6 MG/DOCUSATE SODIUM 50 MG][TAKE 2 50 MG TABLETS PO QD]
     Route: 048
     Dates: start: 20130903
  10. EXCEDRIN [Concomitant]
     Active Substance: ACETAMINOPHEN\ASPIRIN\CAFFEINE
     Indication: HEADACHE
     Dosage: 2 DF, AS NEEDED [[ASPIRIN 250 MG/ACETAMINOPHEN 250 MG/CAFFEINE 65 MG] (2 TABS Q8 HOURS PRN)]
     Dates: start: 20120731
  11. LYRICA [Suspect]
     Active Substance: PREGABALIN
     Indication: ALCOHOL ABUSE
     Dosage: 50 MG, 2X/DAY
     Route: 048
  12. TRAZODONE HYDROCHLORIDE. [Concomitant]
     Active Substance: TRAZODONE HYDROCHLORIDE
     Dosage: 400 MG, DAILY
  13. ROPINIROLE HCL [Concomitant]
     Active Substance: ROPINIROLE HYDROCHLORIDE
     Dosage: 2 MG, AS NEEDED
     Dates: start: 20140902
  14. LYRICA [Suspect]
     Active Substance: PREGABALIN
     Indication: FIBROMYALGIA
     Dosage: 75 MG, 2X/DAY
     Route: 048
     Dates: start: 20140108
  15. SENNA [Concomitant]
     Active Substance: SENNA LEAF\SENNOSIDES\SENNOSIDES A AND B
     Dosage: 300 MG, 1X/DAY
     Route: 048
     Dates: start: 20130903
  16. TRAZODONE HYDROCHLORIDE. [Concomitant]
     Active Substance: TRAZODONE HYDROCHLORIDE
     Indication: DEPRESSION
     Dosage: 400 MG, 1X/DAY (100 MG TABS (TRAZODONE HCL), 4 PO QHS)
     Route: 048
     Dates: start: 20130401
  17. VITAMIN D3 [Concomitant]
     Active Substance: CHOLECALCIFEROL
     Dosage: 2000 IU, DAILY
     Route: 048
     Dates: start: 20130315
  18. CLONAZEPAM. [Concomitant]
     Active Substance: CLONAZEPAM
     Indication: RESTLESS LEGS SYNDROME
     Dosage: 2 MG, 1X/DAY (TAKE TWO TABS BY MOUTH ONCE DAILY. 56 PILLS MUST LAST 28D)
     Route: 048
     Dates: start: 20140902
  19. SENNA [Concomitant]
     Active Substance: SENNA LEAF\SENNOSIDES\SENNOSIDES A AND B
     Dosage: 100 MG, 1X/DAY
     Route: 048
  20. SINEMET [Concomitant]
     Active Substance: CARBIDOPA\LEVODOPA
     Dosage: UNK
  21. ROPINIROLE HCL [Concomitant]
     Active Substance: ROPINIROLE HYDROCHLORIDE
     Dosage: 1 MG, 1X/DAY )(1 TAB QHS.)
  22. LINZESS [Concomitant]
     Active Substance: LINACLOTIDE
     Dosage: 290 UG, 1X/DAY (TAKE TWO IN THE MORNING)

REACTIONS (3)
  - Drug ineffective [Unknown]
  - Musculoskeletal pain [Unknown]
  - Fall [Unknown]

NARRATIVE: CASE EVENT DATE: 20161111
